FAERS Safety Report 18496828 (Version 1)
Quarter: 2020Q4

REPORT INFORMATION
  Report Type: Spontaneous
  Country: FR (occurrence: FR)
  Receive Date: 20201112
  Receipt Date: 20201112
  Transmission Date: 20210114
  Serious: Yes (Other)
  Sender: FDA-Public Use
  Company Number: FR-ABBVIE-20P-056-3647980-00

PATIENT
  Age: 9 Year
  Sex: Female
  Weight: 36 kg

DRUGS (2)
  1. SAIZEN [Concomitant]
     Active Substance: SOMATROPIN
     Indication: GROWTH RETARDATION
     Dosage: UNK
     Route: 058
     Dates: start: 20150708
  2. ENANTONE LP [Suspect]
     Active Substance: LEUPROLIDE ACETATE
     Indication: PRECOCIOUS PUBERTY
     Dosage: 11.25 MILLIGRAM, Q3MONTHS
     Route: 030
     Dates: start: 20190703, end: 20200430

REACTIONS (2)
  - Disturbance in attention [Recovering/Resolving]
  - Cognitive disorder [Recovering/Resolving]

NARRATIVE: CASE EVENT DATE: 20200115
